FAERS Safety Report 5484723-1 (Version None)
Quarter: 2007Q4

REPORT INFORMATION
  Report Type: 
  Country: None (occurrence: None)
  Receive Date: 20071010
  Receipt Date: 20070924
  Transmission Date: 20080405
  Serious: Yes (Other)
  Sender: FDA-Public Use
  Company Number: 8027138

PATIENT
  Age: 10 Year
  Sex: Male

DRUGS (3)
  1. KEPPRA [Suspect]
     Indication: LENNOX-GASTAUT SYNDROME
     Dosage: 1000 MG 2/D
  2. TOPIRAMATE [Suspect]
     Indication: LENNOX-GASTAUT SYNDROME
  3. ETHOSUXIMIDE [Suspect]
     Indication: LENNOX-GASTAUT SYNDROME

REACTIONS (1)
  - THROMBOCYTOPENIA [None]
